FAERS Safety Report 8798211 (Version 1)
Quarter: 2012Q4

REPORT INFORMATION
  Report Type: 
  Country: GB (occurrence: GB)
  Receive Date: 20120920
  Receipt Date: 20120920
  Transmission Date: 20130627
  Serious: Yes (Hospitalization, Other)
  Sender: FDA-Public Use
  Company Number: GB-PFIZER INC-2012226678

PATIENT
  Age: 57 Year
  Sex: Female

DRUGS (7)
  1. LINEZOLID [Suspect]
     Indication: BACTERIAL INFECTION
     Dosage: 600 mg, 2x/day
     Route: 048
  2. TRAMADOL [Concomitant]
     Dosage: UNK
  3. DICLOFENAC [Concomitant]
     Dosage: UNK
  4. BENDROFLUMETHIAZIDE [Concomitant]
     Dosage: UNK
  5. OMEPRAZOLE [Concomitant]
  6. DOSULEPIN [Concomitant]
     Dosage: UNK
  7. VANCOMYCIN [Concomitant]
     Indication: STAPHYLOCOCCAL INFECTION
     Dosage: UNK
     Route: 042

REACTIONS (9)
  - Headache [Recovering/Resolving]
  - Paraesthesia [Recovering/Resolving]
  - Flushing [Recovering/Resolving]
  - Loss of consciousness [Recovering/Resolving]
  - Dizziness [Recovering/Resolving]
  - Cardiac murmur [Recovering/Resolving]
  - Anaemia [Recovering/Resolving]
  - Vision blurred [Recovering/Resolving]
  - Vertigo [Recovering/Resolving]
